FAERS Safety Report 25006338 (Version 2)
Quarter: 2025Q1

REPORT INFORMATION
  Report Type: Spontaneous
  Country: JP (occurrence: JP)
  Receive Date: 20250224
  Receipt Date: 20250328
  Transmission Date: 20250408
  Serious: No
  Sender: JOHNSON AND JOHNSON
  Company Number: JP-MLMSERVICE-20250207-PI399962-00174-1

PATIENT
  Age: 79 Year
  Sex: Male
  Weight: 44.8 kg

DRUGS (1)
  1. HALOPERIDOL [Suspect]
     Active Substance: HALOPERIDOL
     Indication: Agitation
     Route: 030

REACTIONS (1)
  - Catatonia [Recovered/Resolved]
